FAERS Safety Report 7831065-2 (Version None)
Quarter: 2011Q4

REPORT INFORMATION
  Report Type: 
  Country: None (occurrence: None)
  Receive Date: 20111021
  Receipt Date: 20111012
  Transmission Date: 20120403
  Serious: Yes (Disabling)
  Sender: FDA-Public Use
  Company Number: PHHY2010US42061

PATIENT
  Sex: Female
  Weight: 105 kg

DRUGS (5)
  1. CALCIUM CARBONATE [Concomitant]
     Indication: OSTEOPOROSIS
     Dosage: UNK UKN, UNK
     Dates: start: 20080101
  2. RECLAST [Suspect]
     Dosage: 5 MG, UNK
     Route: 042
  3. RECLAST [Suspect]
     Indication: OSTEOPOROSIS
     Dosage: 5 MG,
     Route: 042
     Dates: start: 20110611
  4. RECLAST [Suspect]
     Dosage: 5 MG, PER 100 ML
     Route: 042
     Dates: start: 20110606
  5. VITAMIN D [Concomitant]
     Indication: OSTEOPOROSIS

REACTIONS (12)
  - CHEST DISCOMFORT [None]
  - CHEST PAIN [None]
  - ARTHRALGIA [None]
  - PAIN [None]
  - MUSCLE SPASMS [None]
  - MUSCULOSKELETAL STIFFNESS [None]
  - BACK PAIN [None]
  - NASAL DISCOMFORT [None]
  - CONJUNCTIVITIS [None]
  - LIP PAIN [None]
  - PAIN IN EXTREMITY [None]
  - MUSCULOSKELETAL PAIN [None]
